FAERS Safety Report 15907221 (Version 1)
Quarter: 2019Q1

REPORT INFORMATION
  Report Type: Spontaneous
  Country: US (occurrence: US)
  Receive Date: 20190204
  Receipt Date: 20190204
  Transmission Date: 20190417
  Serious: No
  Sender: FDA-Public Use
  Company Number: US-PFIZER INC-2019041665

PATIENT
  Age: 56 Year
  Sex: Male
  Weight: 154.22 kg

DRUGS (1)
  1. GABAPENTIN. [Suspect]
     Active Substance: GABAPENTIN
     Indication: DIABETIC NEUROPATHY
     Dosage: 2500 MG, DAILY (TAKES 2 BY MOUTH IN THE MORNING AND IN THE AFTERNOON AND 3 AT NIGHT)
     Route: 048
     Dates: end: 201810

REACTIONS (2)
  - Drug ineffective for unapproved indication [Unknown]
  - Prescribed overdose [Unknown]

NARRATIVE: CASE EVENT DATE: 201810
